FAERS Safety Report 6569832-8 (Version None)
Quarter: 2010Q1

REPORT INFORMATION
  Report Type: 
  Country: None (occurrence: None)
  Receive Date: 20100204
  Receipt Date: 20100104
  Transmission Date: 20100710
  Serious: No
  Sender: FDA-Public Use
  Company Number: US-BAYER-201010594BCC

PATIENT
  Age: 87 Year
  Sex: Male
  Weight: 77 kg

DRUGS (5)
  1. ALEVE (CAPLET) [Suspect]
     Indication: ARTHRALGIA
     Dosage: AS USED: 220 MG  UNIT DOSE: 220 MG
     Route: 048
     Dates: start: 20100103
  2. VITAMIN D [Concomitant]
     Route: 065
  3. VITAMIN C [Concomitant]
     Route: 065
  4. BENAZEPRIL HYDROCHLORIDE [Concomitant]
     Route: 065
  5. HYDROCHLOROTHIAZIDE [Concomitant]
     Route: 065

REACTIONS (3)
  - COUGH [None]
  - DYSPNOEA [None]
  - PRODUCTIVE COUGH [None]
